FAERS Safety Report 24274386 (Version 1)
Quarter: 2024Q3

REPORT INFORMATION
  Report Type: Spontaneous
  Country: IN (occurrence: IN)
  Receive Date: 20240902
  Receipt Date: 20240902
  Transmission Date: 20241016
  Serious: Yes (Death, Life-Threatening, Hospitalization)
  Sender: ACCORD
  Company Number: IN-MLMSERVICE-20240814-PI161939-00270-1

PATIENT
  Age: 62 Year
  Sex: Male

DRUGS (6)
  1. TACROLIMUS [Suspect]
     Active Substance: TACROLIMUS
     Indication: Immunosuppression
  2. METHYLPREDNISOLONE [Suspect]
     Active Substance: METHYLPREDNISOLONE
     Indication: Immunosuppression
  3. FLUCONAZOLE [Concomitant]
     Active Substance: FLUCONAZOLE
  4. MEROPENEM [Concomitant]
     Active Substance: MEROPENEM
  5. TEICOPLANIN [Concomitant]
     Active Substance: TEICOPLANIN
  6. TENOFOVIR DISOPROXIL [Concomitant]
     Active Substance: TENOFOVIR DISOPROXIL
     Indication: Hepatitis B

REACTIONS (9)
  - Pleural effusion [Fatal]
  - Fungal infection [Fatal]
  - Acinetobacter infection [Fatal]
  - Septic shock [Fatal]
  - Cytomegalovirus viraemia [Fatal]
  - Ascites [Fatal]
  - Klebsiella infection [Fatal]
  - Multiple organ dysfunction syndrome [Fatal]
  - Klebsiella bacteraemia [Fatal]
